FAERS Safety Report 9192977 (Version 2)
Quarter: 2013Q2

REPORT INFORMATION
  Report Type: Spontaneous
  Country: US (occurrence: None)
  Receive Date: 20120703
  Receipt Date: 20121031
  Transmission Date: 20140414
  Serious: Yes (Other)
  Sender: FDA-Public Use
  Company Number: PHEH2012US006993

PATIENT
  Age: 46 Year
  Sex: Female
  Weight: 53.6 kg

DRUGS (2)
  1. GILENYA (FTY)CAPSULE, 0.5MG [Suspect]
     Indication: MULTIPLE SCLEROSIS
     Route: 048
     Dates: start: 201101, end: 201201
  2. SUMATRIPTAN (SUMATRIPTAN) [Concomitant]

REACTIONS (4)
  - Liver function test abnormal [None]
  - Multiple sclerosis relapse [None]
  - Aspartate aminotransferase increased [None]
  - Alanine aminotransferase increased [None]
